FAERS Safety Report 9027778 (Version 1)
Quarter: 2013Q1

REPORT INFORMATION
  Report Type: Spontaneous
  Country: AE (occurrence: AE)
  Receive Date: 20130124
  Receipt Date: 20130124
  Transmission Date: 20140127
  Serious: No
  Sender: FDA-Public Use
  Company Number: AE-JNJFOC-20130106685

PATIENT
  Age: 46 None
  Sex: Male
  Weight: 99.79 kg

DRUGS (3)
  1. DURAGESIC [Suspect]
     Indication: PAIN
     Route: 062
     Dates: start: 201210
  2. HYDROCODONE [Concomitant]
     Indication: BREAKTHROUGH PAIN
     Dosage: 25 MG TABLET/10 MG/AS NEEDED
     Route: 048
  3. SOMA [Concomitant]
     Indication: MUSCLE SPASMS
     Dosage: 25 MG TABLET/10 MG/AS NEEDED
     Route: 048

REACTIONS (2)
  - Product quality issue [Unknown]
  - Wrong technique in drug usage process [Recovered/Resolved]
